FAERS Safety Report 8435391-8 (Version None)
Quarter: 2012Q2

REPORT INFORMATION
  Report Type: 
  Country: None (occurrence: None)
  Receive Date: 20120614
  Receipt Date: 20120612
  Transmission Date: 20120825
  Serious: Yes (Other)
  Sender: FDA-Public Use
  Company Number: PHEH2012US011740

PATIENT
  Sex: Male

DRUGS (2)
  1. FOCALIN XR [Suspect]
     Dosage: 15 MG, UNK
  2. MELATONIN [Concomitant]

REACTIONS (4)
  - ASPERGER'S DISORDER [None]
  - HYPERMETABOLISM [None]
  - DISTURBANCE IN ATTENTION [None]
  - DRUG INEFFECTIVE [None]
